FAERS Safety Report 9166510 (Version 1)
Quarter: 2013Q1

REPORT INFORMATION
  Report Type: Report from Study
  Country: US (occurrence: US)
  Receive Date: 20130315
  Receipt Date: 20130315
  Transmission Date: 20140127
  Serious: Yes (Other)
  Sender: FDA-Public Use
  Company Number: US-ABBOTT-13P-163-1059652-00

PATIENT
  Sex: Female
  Weight: 54.48 kg

DRUGS (11)
  1. HUMIRA [Suspect]
     Indication: CROHN^S DISEASE
  2. LOMOTIL [Concomitant]
     Indication: DIARRHOEA
     Dosage: 8 PILLS
  3. METOPROLOL [Concomitant]
     Indication: HYPERTENSION
  4. ASPIRIN [Concomitant]
     Indication: CARDIAC PACEMAKER INSERTION
  5. SPIRONOLACTONE [Concomitant]
     Indication: HYPOKALAEMIA
  6. VITAMINS [Concomitant]
     Indication: VITAMIN SUPPLEMENTATION
  7. VITAMIN B12 [Concomitant]
     Indication: VITAMIN SUPPLEMENTATION
  8. CODEINE [Concomitant]
     Indication: PROCEDURAL PAIN
  9. COMPAZINE [Concomitant]
     Indication: NAUSEA
  10. ATIVAN [Concomitant]
     Indication: ANXIETY
  11. ANTIBIOTICS [Concomitant]
     Indication: ANTIBIOTIC PROPHYLAXIS

REACTIONS (4)
  - Vision blurred [Not Recovered/Not Resolved]
  - Eye haemorrhage [Not Recovered/Not Resolved]
  - Cataract [Recovered/Resolved]
  - Hypokalaemia [Not Recovered/Not Resolved]
